FAERS Safety Report 9573302 (Version 1)
Quarter: 2013Q3

REPORT INFORMATION
  Report Type: Spontaneous
  Country: US (occurrence: None)
  Receive Date: 20130930
  Receipt Date: 20130930
  Transmission Date: 20140515
  Serious: Yes (Other)
  Sender: FDA-Public Use
  Company Number: None

PATIENT
  Age: 67 Year
  Sex: Male
  Weight: 81.7 kg

DRUGS (9)
  1. DAPTOMYCIN [Suspect]
     Indication: PNEUMONIA
     Route: 042
     Dates: start: 20130819, end: 20130927
  2. ALLOPURINOL [Concomitant]
  3. ATENOLOL [Concomitant]
  4. AZITHROMYCIN [Concomitant]
  5. CHLORTHALIDONE [Concomitant]
  6. CLONIDINE [Concomitant]
  7. GLIPIZIDE [Concomitant]
  8. METHYLPREDNISONE [Concomitant]
  9. WARFARIN [Concomitant]

REACTIONS (1)
  - Thrombocytopenia [None]
